FAERS Safety Report 7293208-1 (Version None)
Quarter: 2011Q1

REPORT INFORMATION
  Report Type: 
  Country: None (occurrence: None)
  Receive Date: 20110215
  Receipt Date: 20110209
  Transmission Date: 20110831
  Serious: Yes (Hospitalization, Other)
  Sender: FDA-Public Use
  Company Number: FR-PFIZER INC-2011027887

PATIENT
  Age: 34 Year
  Sex: Male
  Weight: 62 kg

DRUGS (20)
  1. HYDROCORTISONE [Concomitant]
     Dosage: 20 MG, 1X/DAY
  2. TOCOPHEROL [Concomitant]
     Dosage: 500 MG, 1X/DAY
  3. EVEROLIMUS [Concomitant]
     Dosage: 1 MG, 1X/DAY
  4. COLCHICINE [Interacting]
     Indication: GOUTY ARTHRITIS
     Dosage: 1 MG, 3X/DAY
     Dates: start: 20091020, end: 20091020
  5. ACETYLSALICYLATE LYSINE [Concomitant]
     Indication: CORONARY ARTERY DISEASE
     Dosage: 75 MG, 1X/DAY
  6. AZITHROMYCIN [Suspect]
     Indication: BRONCHIOLITIS
     Dosage: 250 MG, 1X/DAY
  7. CYCLOSPORINE [Interacting]
     Indication: HEART TRANSPLANT
     Dosage: 170 MG, 2X/DAY
  8. COLIMYCIN [Concomitant]
  9. PRAVASTATIN [Interacting]
     Dosage: 20 MG, 1X/DAY
  10. COLCHICINE [Interacting]
     Dosage: 1 MG, 1X/DAY
     Dates: start: 20091023, end: 20091028
  11. FERROUS ASCORBATE [Concomitant]
     Dosage: 66 MG, 1X/DAY
  12. CYCLOSPORINE [Interacting]
     Indication: LUNG TRANSPLANT
  13. ESOMEPRAZOLE [Concomitant]
     Dosage: 20 MG, UNK
  14. NICORANDIL [Concomitant]
     Dosage: 10 MG, 1X/DAY
  15. IRBESARTAN [Concomitant]
     Dosage: 150 MG, 1X/DAY
  16. COTRIM [Concomitant]
  17. PANCREATIN [Concomitant]
     Dosage: 250000 IU, 1X/DAY
  18. COLCHICINE [Interacting]
     Dosage: 1 MG, 2X/DAY
     Dates: start: 20091021, end: 20091022
  19. CALCIUM [Concomitant]
     Dosage: 1 G, 1X/DAY
  20. VITAMIN D [Concomitant]
     Dosage: 880 IU, 1X/DAY

REACTIONS (2)
  - RHABDOMYOLYSIS [None]
  - POTENTIATING DRUG INTERACTION [None]
